FAERS Safety Report 23060009 (Version 1)
Quarter: 2023Q4

REPORT INFORMATION
  Report Type: Spontaneous
  Country: AT (occurrence: AT)
  Receive Date: 20231012
  Receipt Date: 20231012
  Transmission Date: 20240110
  Serious: Yes (Other)
  Sender: FDA-Public Use
  Company Number: AT-009507513-2309AUT010269

PATIENT
  Age: 52 Year
  Sex: Female

DRUGS (5)
  1. PACLITAXEL [Suspect]
     Active Substance: PACLITAXEL
     Indication: Triple negative breast cancer
     Dosage: 4 CYCLES DURING NEOADJUVANT THERAPY
  2. CARBOPLATIN [Suspect]
     Active Substance: CARBOPLATIN
     Indication: Triple negative breast cancer
     Dosage: 4 CYCLES DURING NEOADJUVANT THERAPY
  3. PEMBROLIZUMAB [Suspect]
     Active Substance: PEMBROLIZUMAB
     Indication: Triple negative breast cancer
     Dosage: 4 CYCLES DURING NEOADJUVANT THERAPY
  4. PEMBROLIZUMAB [Suspect]
     Active Substance: PEMBROLIZUMAB
     Dosage: 9 CYCLES DURING POST-NEOADJUVANT THERAPY
  5. PEMBROLIZUMAB [Suspect]
     Active Substance: PEMBROLIZUMAB
     Dosage: 4 CYCLES + AC

REACTIONS (1)
  - Hypothyroidism [None]
